FAERS Safety Report 4340024-6 (Version None)
Quarter: 2004Q2

REPORT INFORMATION
  Report Type: 
  Country: None (occurrence: None)
  Receive Date: 20040412
  Receipt Date: 20040329
  Transmission Date: 20050107
  Serious: Yes (Life-Threatening)
  Sender: FDA-Public Use
  Company Number: 205554

PATIENT
  Age: 64 Year
  Sex: Male

DRUGS (2)
  1. MABTHERA(RITUXUMAB) CONC FOR SOLUTION FOR INFUSION [Suspect]
     Indication: LEUKAEMIA
     Dosage: 1/MONTH, INTRAVENOUS
     Route: 042
     Dates: start: 20010420, end: 20010811
  2. HEMOPHILUS INFLUENZA B VACCINE (HAEMOPHILUS INFLUENZAR VACCINES) [Concomitant]

REACTIONS (2)
  - DRUG INEFFECTIVE [None]
  - MENINGITIS HAEMOPHILUS [None]
